FAERS Safety Report 21505171 (Version 3)
Quarter: 2022Q4

REPORT INFORMATION
  Report Type: Spontaneous
  Country: US (occurrence: US)
  Receive Date: 20221026
  Receipt Date: 20221228
  Transmission Date: 20230113
  Serious: No
  Sender: FDA-Public Use
  Company Number: US-AMGEN-USASP2022182146

PATIENT
  Age: 61 Year
  Sex: Female
  Weight: 57.8 kg

DRUGS (2)
  1. NEULASTA [Suspect]
     Active Substance: PEGFILGRASTIM
     Indication: Prophylaxis
     Dosage: 6 MILLIGRAM (6 MG/0.6 ML)
     Route: 065
  2. NEULASTA [Suspect]
     Active Substance: PEGFILGRASTIM
     Dosage: 6 MILLIGRAM (6 MG/0.6 ML)
     Route: 065

REACTIONS (1)
  - Device issue [Unknown]

NARRATIVE: CASE EVENT DATE: 20221010
